FAERS Safety Report 8566431-3 (Version None)
Quarter: 2012Q3

REPORT INFORMATION
  Report Type: 
  Country: None (occurrence: None)
  Receive Date: 20120803
  Receipt Date: 20111024
  Transmission Date: 20120928
  Serious: No
  Sender: FDA-Public Use
  Company Number: US-ABBOTT-11P-163-0867353-00

PATIENT
  Sex: Female
  Weight: 94.432 kg

DRUGS (18)
  1. LANTUS [Concomitant]
     Indication: PRODUCT USED FOR UNKNOWN INDICATION
     Dosage: IN THE EVENING
  2. PROTONIX [Concomitant]
     Indication: PRODUCT USED FOR UNKNOWN INDICATION
     Route: 048
  3. ZETIA [Concomitant]
     Indication: PRODUCT USED FOR UNKNOWN INDICATION
     Route: 048
  4. MAG OXIDE [Concomitant]
     Indication: PRODUCT USED FOR UNKNOWN INDICATION
     Route: 048
  5. PLAVIX [Concomitant]
     Indication: PRODUCT USED FOR UNKNOWN INDICATION
     Dosage: IN THE TRILOGY STUDY EITHER TAKING PLAVIX OR EFFIENT
     Route: 048
  6. NIASPAN [Suspect]
     Indication: PRODUCT USED FOR UNKNOWN INDICATION
     Dosage: AT BEDTIME
     Route: 048
  7. DIOVAN [Concomitant]
     Indication: PRODUCT USED FOR UNKNOWN INDICATION
     Route: 048
  8. HUMALOG [Concomitant]
     Indication: PRODUCT USED FOR UNKNOWN INDICATION
     Dosage: INJECTED SLIDING SCALE STARTING WITH 6U
  9. METFORMIN HYDROCHLORIDE [Concomitant]
     Indication: PRODUCT USED FOR UNKNOWN INDICATION
     Route: 048
  10. K+ [Concomitant]
     Indication: PRODUCT USED FOR UNKNOWN INDICATION
     Route: 048
  11. WELLBUTRIN [Concomitant]
     Indication: PRODUCT USED FOR UNKNOWN INDICATION
     Route: 048
  12. LIPITOR [Concomitant]
     Indication: PRODUCT USED FOR UNKNOWN INDICATION
     Route: 048
  13. ASPIRIN [Concomitant]
     Indication: PRODUCT USED FOR UNKNOWN INDICATION
     Dosage: IN THE MORNING
     Route: 048
  14. BENADRYL [Concomitant]
     Indication: ERYTHEMA
     Route: 048
  15. BENADRYL [Concomitant]
     Indication: RASH
  16. COREG [Concomitant]
     Indication: PRODUCT USED FOR UNKNOWN INDICATION
     Route: 048
  17. FUROSEMIDE [Concomitant]
     Indication: PRODUCT USED FOR UNKNOWN INDICATION
     Route: 048
  18. EFFIENT [Concomitant]
     Indication: PRODUCT USED FOR UNKNOWN INDICATION
     Dosage: IN THE TRILOGY STUDY EITHER TAKING PLAVIX OR EFFIENT
     Route: 048

REACTIONS (5)
  - SKIN BURNING SENSATION [None]
  - NAUSEA [None]
  - FLUSHING [None]
  - RASH [None]
  - ERYTHEMA [None]
